FAERS Safety Report 6631538-4 (Version None)
Quarter: 2010Q1

REPORT INFORMATION
  Report Type: 
  Country: None (occurrence: None)
  Receive Date: 20100312
  Receipt Date: 20100304
  Transmission Date: 20100710
  Serious: Yes (Other)
  Sender: FDA-Public Use
  Company Number: PHHY2010AU08796

PATIENT
  Sex: Female

DRUGS (4)
  1. ACLASTA [Suspect]
     Dosage: UNK
     Dates: start: 20100211
  2. ATACAND HCT [Concomitant]
     Indication: HYPERTENSION
     Dosage: 16/12.5 MG, QD
  3. NEXIUM [Concomitant]
     Indication: GASTROOESOPHAGEAL REFLUX DISEASE
     Dosage: 40 MG DAILY
  4. OSTELIN [Concomitant]
     Indication: VITAMIN D DEFICIENCY
     Dosage: 1000 IV DAILY

REACTIONS (5)
  - ASTHENIA [None]
  - HYPOTENSION [None]
  - INFLUENZA LIKE ILLNESS [None]
  - PYREXIA [None]
  - SYNCOPE [None]
